FAERS Safety Report 18454038 (Version 1)
Quarter: 2020Q4

REPORT INFORMATION
  Report Type: Spontaneous
  Country: IT (occurrence: IT)
  Receive Date: 20201102
  Receipt Date: 20201102
  Transmission Date: 20210114
  Serious: Yes (Other)
  Sender: FDA-Public Use
  Company Number: NVSC2020IT292186

PATIENT
  Age: 67 Year
  Sex: Male

DRUGS (3)
  1. AZITHROMYCIN DIHYDRATE. [Suspect]
     Active Substance: AZITHROMYCIN DIHYDRATE
     Indication: COVID-19
     Dosage: UNK
     Route: 065
  2. AZITHROMYCIN DIHYDRATE. [Suspect]
     Active Substance: AZITHROMYCIN DIHYDRATE
     Indication: OFF LABEL USE
  3. HYDROXYCHLOROQUINE [Suspect]
     Active Substance: HYDROXYCHLOROQUINE
     Indication: COVID-19
     Dosage: UNK
     Route: 065

REACTIONS (8)
  - Nephrotic syndrome [Unknown]
  - Pyrexia [Unknown]
  - Drug interaction [Unknown]
  - Product use in unapproved indication [Unknown]
  - Generalised oedema [Unknown]
  - Condition aggravated [Unknown]
  - Off label use [Unknown]
  - Asthenia [Unknown]
